FAERS Safety Report 6362940-6 (Version None)
Quarter: 2009Q3

REPORT INFORMATION
  Report Type: 
  Country: None (occurrence: None)
  Receive Date: 20090919
  Receipt Date: 20090610
  Transmission Date: 20100115
  Serious: No
  Sender: FDA-Public Use
  Company Number: US-ABBOTT-09P-163-0579440-00

PATIENT
  Sex: Female
  Weight: 77.18 kg

DRUGS (3)
  1. HUMIRA [Suspect]
     Indication: PSORIASIS
     Dosage: PT. PLANS TO CONTINUE 40MG EVERY OTHER WK DOSING.
     Route: 058
     Dates: start: 20090610, end: 20090610
  2. HUMIRA [Suspect]
  3. FORTEO [Concomitant]
     Indication: OSTEOPOROSIS
     Route: 058

REACTIONS (1)
  - INJECTION SITE PAIN [None]
